FAERS Safety Report 9768377 (Version 1)
Quarter: 2013Q4

REPORT INFORMATION
  Report Type: Spontaneous
  Country: IT (occurrence: IT)
  Receive Date: 20131217
  Receipt Date: 20131217
  Transmission Date: 20140711
  Serious: Yes (Other)
  Sender: FDA-Public Use
  Company Number: IT-FRI-1000052309

PATIENT
  Age: 42 Year
  Sex: Female

DRUGS (2)
  1. FOSFOMYCIN [Suspect]
     Indication: URINARY TRACT INFECTION
     Dosage: 3 GRAM
     Route: 048
     Dates: start: 20130524, end: 20130525
  2. QUINOLONES NOS [Concomitant]

REACTIONS (5)
  - Hypersensitivity [Recovered/Resolved]
  - Anuria [Recovered/Resolved]
  - Lip oedema [Recovered/Resolved]
  - Vertigo [Recovered/Resolved]
  - Diarrhoea [Recovered/Resolved]
